FAERS Safety Report 15699847 (Version 3)
Quarter: 2020Q4

REPORT INFORMATION
  Report Type: Report from Study
  Country: ZA (occurrence: ZA)
  Receive Date: 20181207
  Receipt Date: 20201125
  Transmission Date: 20210113
  Serious: Yes (Other)
  Sender: FDA-Public Use
  Company Number: PHHY2018ZA097520

PATIENT
  Age: 65 Year
  Sex: Male

DRUGS (2)
  1. GILENYA [Suspect]
     Active Substance: FINGOLIMOD HYDROCHLORIDE
     Indication: RELAPSING-REMITTING MULTIPLE SCLEROSIS
     Dosage: 0.5 MG
     Route: 048
     Dates: start: 20180907
  2. TUVIGIN [Suspect]
     Active Substance: FINGOLIMOD HYDROCHLORIDE
     Indication: RELAPSING-REMITTING MULTIPLE SCLEROSIS
     Dosage: 0.5 MG, QD
     Route: 048
     Dates: start: 20180907

REACTIONS (8)
  - Heart rate decreased [Unknown]
  - Epistaxis [Unknown]
  - Retinal disorder [Unknown]
  - Nasal neoplasm [Unknown]
  - Blood pressure decreased [Unknown]
  - Glaucoma [Unknown]
  - Optic nerve cup/disc ratio increased [Unknown]
  - Paraparesis [Unknown]

NARRATIVE: CASE EVENT DATE: 20180907
